FAERS Safety Report 9174127 (Version 2)
Quarter: 2013Q2

REPORT INFORMATION
  Report Type: Report from Study
  Country: ES (occurrence: ES)
  Receive Date: 20130320
  Receipt Date: 20130416
  Transmission Date: 20140414
  Serious: Yes (Hospitalization)
  Sender: FDA-Public Use
  Company Number: PHHO2013ES004043

PATIENT
  Age: 68 Year
  Sex: Male
  Weight: 70 kg

DRUGS (12)
  1. RAMIPRIL [Suspect]
     Indication: CARDIAC FAILURE
     Dosage: 10 MG, QD
     Dates: start: 20120526, end: 20130305
  2. RAMIPRIL [Suspect]
     Dosage: 10 MG, QD
     Route: 048
     Dates: start: 20130322, end: 20130410
  3. FUROSEMIDE [Suspect]
     Indication: CARDIAC FAILURE
     Dosage: 40 MG, QD
     Dates: start: 20120220, end: 20130305
  4. FUROSEMIDE [Suspect]
     Dosage: 250 MG, QD
     Route: 042
     Dates: start: 20130318, end: 20130320
  5. FUROSEMIDE [Suspect]
     Dosage: 40 MG, QD
     Route: 048
     Dates: start: 20130327, end: 20130410
  6. IBUPROFEN [Suspect]
     Indication: INTERMITTENT CLAUDICATION
     Dosage: 400 MG, Q8H
     Dates: start: 20130304, end: 20130305
  7. BLINDED ENALAPRIL [Suspect]
     Indication: CARDIAC FAILURE CHRONIC
     Dosage: CODE NOT BROKEN
     Route: 048
     Dates: start: 20110714, end: 20120525
  8. BLINDED LCZ696 [Suspect]
     Indication: CARDIAC FAILURE CHRONIC
     Dosage: CODE NOT BROKEN
     Route: 048
     Dates: start: 20110714, end: 20120525
  9. BLINDED NO TREATMENT RECEIVED [Suspect]
     Indication: CARDIAC FAILURE CHRONIC
     Dosage: CODE NOT BROKEN
     Route: 048
     Dates: start: 20110714, end: 20120525
  10. BISOPROLOL [Concomitant]
     Indication: CARDIAC FAILURE
     Dosage: 5 MG, QD
     Route: 048
     Dates: start: 20111116
  11. ACETYLSALICYLIC ACID [Concomitant]
     Indication: ISCHAEMIC CARDIOMYOPATHY
     Dosage: 100 MG, QD
     Route: 048
     Dates: start: 20110326
  12. OMEPRAZOLE [Concomitant]
     Indication: PROPHYLAXIS
     Dosage: 20 MG, QD
     Dates: start: 20120525

REACTIONS (6)
  - Renal failure acute [Recovered/Resolved]
  - Gastroenteritis [Recovered/Resolved]
  - Cardiac failure [Recovered/Resolved]
  - Tracheobronchitis [Recovered/Resolved]
  - Haematuria [Recovered/Resolved]
  - Urinary tract infection [Recovered/Resolved]
